FAERS Safety Report 5198425-2 (Version None)
Quarter: 2007Q1

REPORT INFORMATION
  Report Type: 
  Country: None (occurrence: None)
  Receive Date: 20070104
  Receipt Date: 20061226
  Transmission Date: 20070707
  Serious: Yes (Other)
  Sender: FDA-Public Use
  Company Number: 2003UW13189

PATIENT
  Age: 55 Year
  Sex: Female
  Weight: 50.8 kg

DRUGS (6)
  1. ARIMIDEX [Suspect]
     Indication: BREAST CANCER FEMALE
     Route: 048
     Dates: start: 20030801
  2. ARIMIDEX [Suspect]
     Route: 048
     Dates: start: 20050401
  3. PROTONIX [Concomitant]
  4. LEXAPRO [Concomitant]
  5. LIPITOR [Concomitant]
     Route: 048
  6. EFFEXOR [Concomitant]

REACTIONS (14)
  - ARTHRALGIA [None]
  - BLOOD CHOLESTEROL INCREASED [None]
  - BREAST DISORDER FEMALE [None]
  - HOT FLUSH [None]
  - JOINT SWELLING [None]
  - MUSCLE SPASMS [None]
  - PAIN IN EXTREMITY [None]
  - POST PROCEDURAL COMPLICATION [None]
  - PULMONARY CONGESTION [None]
  - RESORPTION BONE INCREASED [None]
  - SCAR [None]
  - TOOTH DISORDER [None]
  - VISION BLURRED [None]
  - WEIGHT INCREASED [None]
